FAERS Safety Report 4651356-6 (Version None)
Quarter: 2005Q2

REPORT INFORMATION
  Report Type: 
  Country: None (occurrence: None)
  Receive Date: 20050503
  Receipt Date: 20030124
  Transmission Date: 20051028
  Serious: Yes (Hospitalization)
  Sender: FDA-Public Use
  Company Number: FR-ABBOTT-03P-056-0209053-00

PATIENT
  Sex: Male

DRUGS (6)
  1. DEPAKOTE [Suspect]
     Indication: BIPOLAR I DISORDER
     Route: 048
     Dates: start: 20020301, end: 20030116
  2. AMISULPRIDE [Concomitant]
     Indication: BIPOLAR I DISORDER
     Route: 048
     Dates: end: 20030106
  3. CYAMEMAZINE [Concomitant]
     Indication: INSOMNIA
     Route: 048
  4. CIPROFIBRATE [Concomitant]
     Indication: HYPERTRIGLYCERIDAEMIA
     Route: 048
     Dates: end: 20031001
  5. BENFLUOREX HYDROCHLORIDE [Concomitant]
     Indication: DRUG USE FOR UNKNOWN INDICATION
     Route: 048
     Dates: end: 20031001
  6. LIOTHYRONINE SODIUM [Concomitant]
     Indication: DRUG USE FOR UNKNOWN INDICATION
     Route: 048
     Dates: end: 20030101

REACTIONS (10)
  - ABNORMAL BEHAVIOUR [None]
  - AMMONIA INCREASED [None]
  - ANXIETY [None]
  - CEREBRAL ATROPHY [None]
  - CONFUSIONAL STATE [None]
  - ELECTROENCEPHALOGRAM ABNORMAL [None]
  - EXTRAPYRAMIDAL DISORDER [None]
  - MEMORY IMPAIRMENT [None]
  - METABOLIC ENCEPHALOPATHY [None]
  - PARKINSON'S DISEASE [None]
